FAERS Safety Report 15942196 (Version 1)
Quarter: 2019Q1

REPORT INFORMATION
  Report Type: Spontaneous
  Country: SI (occurrence: SI)
  Receive Date: 20190209
  Receipt Date: 20190209
  Transmission Date: 20190417
  Serious: Yes (Other)
  Sender: FDA-Public Use
  Company Number: SI-TEVA-2019-SI-1009039

PATIENT
  Age: 54 Year
  Sex: Male

DRUGS (3)
  1. CAPECITABINE. [Concomitant]
     Active Substance: CAPECITABINE
  2. OKSALIPLATIN TEVA 5 MG/ML [Suspect]
     Active Substance: OXALIPLATIN
     Indication: COLORECTAL ADENOCARCINOMA
     Dosage: 5 MG/ML CONCENTRATE FOR SOLUTION FOR INFUSION
     Dates: start: 20180824, end: 20190104
  3. CAPECITABINE. [Concomitant]
     Active Substance: CAPECITABINE

REACTIONS (3)
  - Dyspnoea [Recovered/Resolved]
  - Hypertension [Recovered/Resolved]
  - Speech disorder [Recovered/Resolved]

NARRATIVE: CASE EVENT DATE: 20190104
